FAERS Safety Report 7164127-6 (Version None)
Quarter: 2010Q4

REPORT INFORMATION
  Report Type: 
  Country: None (occurrence: None)
  Receive Date: 20101215
  Receipt Date: 20101207
  Transmission Date: 20110411
  Serious: Yes (Hospitalization)
  Sender: FDA-Public Use
  Company Number: US-AMGEN-USASP2010008120

PATIENT

DRUGS (1)
  1. ENBREL [Suspect]
     Route: 058
     Dates: start: 20090901

REACTIONS (1)
  - CARTILAGE ATROPHY [None]
